FAERS Safety Report 4945774-6 (Version None)
Quarter: 2006Q1

REPORT INFORMATION
  Report Type: 
  Country: None (occurrence: None)
  Receive Date: 20060117
  Receipt Date: 20050304
  Transmission Date: 20060701
  Serious: Yes (Hospitalization)
  Sender: FDA-Public Use
  Company Number: A03200500617

PATIENT
  Age: 75 Year
  Sex: Male

DRUGS (3)
  1. PLAVIX [Suspect]
     Dosage: ORAL
     Route: 048
  2. COUMADIN [Suspect]
     Dosage: ORAL
     Route: 048
  3. TICLID [Suspect]
     Dosage: ORAL
     Route: 048

REACTIONS (2)
  - PLATELET COUNT DECREASED [None]
  - RASH GENERALISED [None]
